FAERS Safety Report 6079269-6 (Version None)
Quarter: 2009Q1

REPORT INFORMATION
  Report Type: 
  Country: None (occurrence: None)
  Receive Date: 20090216
  Receipt Date: 20090210
  Transmission Date: 20090719
  Serious: Yes (Other)
  Sender: FDA-Public Use
  Company Number: US-BAYER-200912945NA

PATIENT
  Age: 91 Year
  Sex: Male

DRUGS (1)
  1. NEXAVAR [Suspect]
     Indication: RENAL CELL CARCINOMA
     Dosage: TOTAL DAILY DOSE: 400 MG  UNIT DOSE: 200 MG
     Route: 048
     Dates: start: 20090131, end: 20090202

REACTIONS (4)
  - COMMUNICATION DISORDER [None]
  - FALL [None]
  - HYPOPHAGIA [None]
  - PERFORMANCE STATUS DECREASED [None]
